FAERS Safety Report 5511417-6 (Version None)
Quarter: 2007Q4

REPORT INFORMATION
  Report Type: 
  Country: None (occurrence: None)
  Receive Date: 20071109
  Receipt Date: 20071101
  Transmission Date: 20080405
  Serious: Yes (Hospitalization, Other)
  Sender: FDA-Public Use
  Company Number: US-ROCHE-473387

PATIENT
  Age: 23 Year
  Sex: Female
  Weight: 46.7 kg

DRUGS (3)
  1. ACCUTANE [Suspect]
     Route: 048
     Dates: start: 19990319, end: 19990801
  2. BIRTH CONTROL PILLS NOS [Concomitant]
  3. PREDNISONE [Concomitant]

REACTIONS (22)
  - ABDOMINAL PAIN [None]
  - ANAEMIA [None]
  - ARTHRALGIA [None]
  - CHOLECYSTITIS [None]
  - COLITIS [None]
  - COLITIS ULCERATIVE [None]
  - COLON CANCER [None]
  - DIARRHOEA [None]
  - DYSPAREUNIA [None]
  - GALLBLADDER INJURY [None]
  - GASTRITIS [None]
  - HEADACHE [None]
  - HYDRONEPHROSIS [None]
  - INFLAMMATORY BOWEL DISEASE [None]
  - INTERNAL HERNIA [None]
  - INTESTINAL HAEMORRHAGE [None]
  - POSTPARTUM DEPRESSION [None]
  - PROCTITIS [None]
  - PROCTOCOLITIS [None]
  - RECTAL HAEMORRHAGE [None]
  - SMALL INTESTINAL OBSTRUCTION [None]
  - WEIGHT DECREASED [None]
